FAERS Safety Report 17955889 (Version 2)
Quarter: 2020Q3

REPORT INFORMATION
  Report Type: Report from Study
  Country: None (occurrence: US)
  Receive Date: 20200629
  Receipt Date: 20200724
  Transmission Date: 20201103
  Serious: No
  Sender: FDA-Public Use
  Company Number: US-ABBVIE-20K-163-3461030-00

PATIENT
  Sex: Female

DRUGS (3)
  1. HYDROXYCHLOROQUINE [Concomitant]
     Active Substance: HYDROXYCHLOROQUINE
     Indication: PRODUCT USED FOR UNKNOWN INDICATION
  2. HUMIRA [Suspect]
     Active Substance: ADALIMUMAB
     Indication: RHEUMATOID ARTHRITIS
     Dosage: CITRATE FREE
     Route: 058
  3. METHOTREXATE. [Concomitant]
     Active Substance: METHOTREXATE
     Indication: PRODUCT USED FOR UNKNOWN INDICATION

REACTIONS (11)
  - Insomnia [Not Recovered/Not Resolved]
  - Diabetes mellitus [Unknown]
  - Musculoskeletal stiffness [Recovering/Resolving]
  - Peripheral swelling [Recovering/Resolving]
  - Gait disturbance [Recovering/Resolving]
  - Pain [Unknown]
  - Pain in extremity [Unknown]
  - Arthralgia [Recovering/Resolving]
  - Arthralgia [Not Recovered/Not Resolved]
  - Weight bearing difficulty [Recovering/Resolving]
  - Back pain [Recovering/Resolving]

NARRATIVE: CASE EVENT DATE: 2020
